FAERS Safety Report 14658772 (Version 1)
Quarter: 2018Q1

REPORT INFORMATION
  Report Type: Report from Study
  Country: DE (occurrence: DE)
  Receive Date: 20180320
  Receipt Date: 20180320
  Transmission Date: 20180509
  Serious: Yes (Other)
  Sender: FDA-Public Use
  Company Number: DE-ROCHE-2071555

PATIENT
  Age: 46 Year
  Sex: Female

DRUGS (4)
  1. CETRIZINE [Concomitant]
     Active Substance: CETIRIZINE HYDROCHLORIDE
  2. L THYROXIN [Concomitant]
     Active Substance: LEVOTHYROXINE SODIUM
  3. OCREVUS [Suspect]
     Active Substance: OCRELIZUMAB
     Indication: MULTIPLE SCLEROSIS
     Route: 042
     Dates: start: 20180205
  4. QLAIRA [Concomitant]
     Active Substance: DIENOGEST\ESTRADIOL VALERATE

REACTIONS (4)
  - Respiratory tract infection [Not Recovered/Not Resolved]
  - Fatigue [Recovered/Resolved]
  - Headache [Unknown]
  - Limb discomfort [Recovered/Resolved]

NARRATIVE: CASE EVENT DATE: 20180206
